FAERS Safety Report 6412967-0 (Version None)
Quarter: 2009Q4

REPORT INFORMATION
  Report Type: 
  Country: None (occurrence: None)
  Receive Date: 20091023
  Receipt Date: 20091009
  Transmission Date: 20100525
  Serious: Yes (Other)
  Sender: FDA-Public Use
  Company Number: PHHY2009BE43382

PATIENT
  Sex: Male

DRUGS (4)
  1. GLEEVEC [Suspect]
     Indication: CHRONIC MYELOID LEUKAEMIA
     Dosage: 400 MG/DAY
     Route: 048
     Dates: end: 20070101
  2. GLEEVEC [Suspect]
     Dosage: 400 MG/DAY
     Route: 048
     Dates: start: 20090801, end: 20090901
  3. PROTON PUMP INHIBITORS [Concomitant]
     Indication: GASTRIC ULCER
  4. HYDREA [Concomitant]

REACTIONS (6)
  - ANAEMIA [None]
  - GASTRIC ULCER HAEMORRHAGE [None]
  - MELAENA [None]
  - POLYARTHRITIS [None]
  - THROMBOCYTOPENIA [None]
  - WHITE BLOOD CELL COUNT INCREASED [None]
